FAERS Safety Report 4979692-4 (Version None)
Quarter: 2006Q1

REPORT INFORMATION
  Report Type: 
  Country: None (occurrence: None)
  Receive Date: 20060227
  Receipt Date: 20050105
  Transmission Date: 20060701
  Serious: Yes (Hospitalization)
  Sender: FDA-Public Use
  Company Number: WAES  0501USA00451

PATIENT
  Sex: Male

DRUGS (1)
  1. ZOCOR [Suspect]
     Dosage: 80 MG PO
     Route: 048
     Dates: end: 20050101

REACTIONS (1)
  - BLOOD CREATINE PHOSPHOKINASE INCREASED [None]
